FAERS Safety Report 4332841-3 (Version None)
Quarter: 2004Q2

REPORT INFORMATION
  Report Type: 
  Country: None (occurrence: None)
  Receive Date: 20040405
  Receipt Date: 20040405
  Transmission Date: 20050107
  Serious: Yes (Hospitalization)
  Sender: FDA-Public Use
  Company Number: None

PATIENT
  Age: 38 Year
  Sex: Male
  Weight: 78.9259 kg

DRUGS (3)
  1. NIASPAN [Suspect]
     Dosage: 1500 MG ORAL DOSE (500 MG X 3)
     Route: 048
     Dates: start: 20040309
  2. NIASPAN [Suspect]
     Dosage: 1500 MG ORAL DOSE (500 MG X 3)
     Route: 048
     Dates: start: 20040316
  3. IBUPROFEN [Concomitant]

REACTIONS (13)
  - AGITATION [None]
  - BLOOD PRESSURE INCREASED [None]
  - CYANOSIS [None]
  - FEELING COLD [None]
  - FEELING HOT [None]
  - FLUSHING [None]
  - HEART RATE INCREASED [None]
  - PAIN [None]
  - PALLOR [None]
  - PARAESTHESIA [None]
  - PYREXIA [None]
  - RESPIRATORY RATE INCREASED [None]
  - TREMOR [None]
